FAERS Safety Report 5109051-5 (Version None)
Quarter: 2006Q3

REPORT INFORMATION
  Report Type: 
  Country: None (occurrence: None)
  Receive Date: 20060918
  Receipt Date: 20060906
  Transmission Date: 20061208
  Serious: Yes (Hospitalization, Other)
  Sender: FDA-Public Use
  Company Number: 2006105765

PATIENT
  Age: 68 Year
  Sex: Female

DRUGS (1)
  1. NEURONTIN [Suspect]
     Indication: NEURALGIA
     Dosage: 900 MG (300 MG, 3 IN 1 D); ORAL
     Route: 048

REACTIONS (3)
  - DEMENTIA ALZHEIMER'S TYPE [None]
  - FALL [None]
  - MALAISE [None]
